FAERS Safety Report 17468552 (Version 4)
Quarter: 2020Q1

REPORT INFORMATION
  Report Type: Report from Study
  Country: US (occurrence: US)
  Receive Date: 20200227
  Receipt Date: 20200324
  Transmission Date: 20200409
  Serious: Yes (Other)
  Sender: FDA-Public Use
  Company Number: US-INCYTE CORPORATION-2020IN001270

PATIENT

DRUGS (9)
  1. JAKAFI [Suspect]
     Active Substance: RUXOLITINIB
     Dosage: 5 MILLIGRAM, QD
     Route: 048
     Dates: start: 20191112, end: 20191117
  2. JAKAFI [Suspect]
     Active Substance: RUXOLITINIB
     Indication: POLYCYTHAEMIA VERA
     Dosage: 5 MG BID AND OD ON ALL OTHER DAYS
     Route: 065
     Dates: start: 20191007, end: 20191022
  3. JAKAFI [Suspect]
     Active Substance: RUXOLITINIB
     Dosage: 5 MILLIGRAM, QD
     Route: 048
     Dates: start: 20191223, end: 20200120
  4. JAKAFI [Suspect]
     Active Substance: RUXOLITINIB
     Dosage: VARIABLE DEPENDING IN PLT COUNTS, OD UNLESS HELD
     Route: 048
     Dates: start: 201909
  5. JAKAFI [Suspect]
     Active Substance: RUXOLITINIB
     Indication: MYELOFIBROSIS
     Dosage: 5 MILLIGRAM, QD
     Route: 065
     Dates: start: 20190926, end: 20191006
  6. JAKAFI [Suspect]
     Active Substance: RUXOLITINIB
     Dosage: 5 MILLIGRAM BID ON M, TH AND QD ON ALL OTHER DAYS
     Route: 048
     Dates: start: 20200121
  7. JAKAFI [Suspect]
     Active Substance: RUXOLITINIB
     Indication: MYELOFIBROSIS
     Dosage: 5 MILLIGRAM, BID
     Route: 048
     Dates: start: 20191023, end: 20191111
  8. JAKAFI [Suspect]
     Active Substance: RUXOLITINIB
     Dosage: 5 MILLIGRAM QD ON MWF
     Route: 065
     Dates: start: 20191118, end: 20191211
  9. JAKAFI [Suspect]
     Active Substance: RUXOLITINIB
     Dosage: 5 MILLIGRAM 5 DAYS A WEEK (M,TH OFF)
     Route: 048
     Dates: start: 20191212, end: 20191222

REACTIONS (6)
  - Myelofibrosis [Unknown]
  - Thrombocytopenia [Not Recovered/Not Resolved]
  - Product dose omission [Unknown]
  - Inappropriate schedule of product administration [Unknown]
  - Disease progression [Unknown]
  - Drug intolerance [Unknown]

NARRATIVE: CASE EVENT DATE: 20190926
